FAERS Safety Report 4667732-1 (Version None)
Quarter: 2005Q2

REPORT INFORMATION
  Report Type: 
  Country: None (occurrence: None)
  Receive Date: 20050520
  Receipt Date: 20050407
  Transmission Date: 20051028
  Serious: Yes (Life-Threatening, Hospitalization, Disabling, Other)
  Sender: FDA-Public Use
  Company Number: US-MERCK-0504USA00934

PATIENT
  Age: 83 Year
  Sex: Female
  Weight: 55 kg

DRUGS (8)
  1. LANOXIN [Concomitant]
     Route: 065
  2. NITROGLYCERIN [Concomitant]
     Route: 060
  3. TYLENOL (CAPLET) [Concomitant]
     Route: 065
  4. ZOCOR [Suspect]
     Indication: HYPERCHOLESTEROLAEMIA
     Route: 048
  5. ZOCOR [Suspect]
     Route: 048
     Dates: end: 20001125
  6. TOPROL-XL [Concomitant]
     Route: 048
  7. VALIUM [Concomitant]
     Indication: ANXIETY
     Route: 065
  8. VICODIN [Concomitant]
     Route: 065

REACTIONS (7)
  - CONSTIPATION [None]
  - CYSTOCELE [None]
  - DEHYDRATION [None]
  - ENTEROCOCCAL INFECTION [None]
  - RENAL FAILURE [None]
  - RHABDOMYOLYSIS [None]
  - URINARY TRACT INFECTION [None]
